FAERS Safety Report 12712892 (Version 1)
Quarter: 2016Q3

REPORT INFORMATION
  Report Type: Spontaneous
  Country: US (occurrence: US)
  Receive Date: 20160902
  Receipt Date: 20160902
  Transmission Date: 20161109
  Serious: No
  Sender: FDA-Public Use
  Company Number: US-009507513-1608USA010344

PATIENT
  Age: 82 Year
  Sex: Male
  Weight: 97.5 kg

DRUGS (10)
  1. REMERON [Suspect]
     Active Substance: MIRTAZAPINE
     Indication: PRODUCT USED FOR UNKNOWN INDICATION
     Dosage: 15 MG, QD
     Route: 048
     Dates: start: 20160629
  2. ENTACAPONE. [Concomitant]
     Active Substance: ENTACAPONE
  3. RYTARY [Concomitant]
     Active Substance: CARBIDOPA\LEVODOPA
  4. DOCUSATE SODIUM. [Concomitant]
     Active Substance: DOCUSATE SODIUM
  5. NUPLAZID [Interacting]
     Active Substance: PIMAVANSERIN TARTRATE
     Indication: PARKINSON^S DISEASE PSYCHOSIS
     Dosage: 34 MG, QD
     Route: 048
     Dates: start: 20160629
  6. WARFARIN [Concomitant]
     Active Substance: WARFARIN
  7. FOLIC ACID. [Concomitant]
     Active Substance: FOLIC ACID
  8. EXELON [Concomitant]
     Active Substance: RIVASTIGMINE TARTRATE
  9. JANUMET [Concomitant]
     Active Substance: METFORMIN HYDROCHLORIDE\SITAGLIPTIN PHOSPHATE
  10. SINEMET [Concomitant]
     Active Substance: CARBIDOPA\LEVODOPA

REACTIONS (5)
  - Anxiety [Unknown]
  - Agitation [Unknown]
  - Drug interaction [Unknown]
  - Panic reaction [Unknown]
  - Hallucination [Unknown]

NARRATIVE: CASE EVENT DATE: 2016
